FAERS Safety Report 7417993-0 (Version None)
Quarter: 2011Q2

REPORT INFORMATION
  Report Type: 
  Country: None (occurrence: None)
  Receive Date: 20110415
  Receipt Date: 20110411
  Transmission Date: 20111010
  Serious: Yes (Death)
  Sender: FDA-Public Use
  Company Number: NL-SANOFI-AVENTIS-2011SA021823

PATIENT
  Age: 73 Year
  Sex: Male

DRUGS (6)
  1. CAPECITABINE [Suspect]
     Indication: COLORECTAL CANCER
     Route: 048
     Dates: start: 20101006
  2. METFORMIN [Concomitant]
  3. ESOMEPRAZOLE [Concomitant]
  4. PREDNISONE [Concomitant]
  5. OXALIPLATIN [Suspect]
     Indication: COLORECTAL CANCER
     Route: 042
     Dates: start: 20101006, end: 20101006
  6. BEVACIZUMAB [Suspect]
     Indication: COLORECTAL CANCER
     Route: 042
     Dates: start: 20101006, end: 20101006

REACTIONS (2)
  - DEATH [None]
  - MALAISE [None]
